FAERS Safety Report 5179002-6 (Version None)
Quarter: 2006Q4

REPORT INFORMATION
  Report Type: 
  Country: None (occurrence: None)
  Receive Date: 20061215
  Receipt Date: 20061215
  Transmission Date: 20070319
  Serious: Yes (Other)
  Sender: FDA-Public Use
  Company Number: None

PATIENT
  Sex: Female
  Weight: 84.369 kg

DRUGS (2)
  1. PHENTERMINE [Suspect]
     Indication: WEIGHT CONTROL
     Dosage: 1 TABLET  EVERY MORNING PO
     Route: 048
  2. PHENTERMINE [Suspect]

REACTIONS (4)
  - CHEST PAIN [None]
  - FULL BLOOD COUNT ABNORMAL [None]
  - MALAISE [None]
  - THERAPEUTIC PRODUCT CONTAMINATION [None]
